FAERS Safety Report 16014414 (Version 2)
Quarter: 2019Q1

REPORT INFORMATION
  Report Type: Spontaneous
  Country: US (occurrence: US)
  Receive Date: 20190227
  Receipt Date: 20190301
  Transmission Date: 20190418
  Serious: Yes (Other)
  Sender: FDA-Public Use
  Company Number: US-PFIZER INC-2019077860

PATIENT
  Sex: Female

DRUGS (1)
  1. XELJANZ [Suspect]
     Active Substance: TOFACITINIB CITRATE
     Indication: COLITIS ULCERATIVE
     Dosage: 10 MG, 2X/DAY
     Route: 065
     Dates: start: 20190115

REACTIONS (7)
  - Headache [Unknown]
  - Tinnitus [Not Recovered/Not Resolved]
  - Acne [Unknown]
  - Arthralgia [Unknown]
  - Deafness [Not Recovered/Not Resolved]
  - Furuncle [Unknown]
  - Myalgia [Unknown]
